FAERS Safety Report 5777078-6 (Version None)
Quarter: 2008Q2

REPORT INFORMATION
  Report Type: 
  Country: None (occurrence: None)
  Receive Date: 20080617
  Receipt Date: 20080617
  Transmission Date: 20081010
  Serious: Yes (Life-Threatening)
  Sender: FDA-Public Use
  Company Number: None

PATIENT
  Age: 82 Year
  Sex: Male

DRUGS (11)
  1. WARFARIN SODIUM [Suspect]
     Indication: CORONARY ARTERY DISEASE
     Dosage: 2.5/2 MG PO QD
     Route: 048
     Dates: start: 20080411, end: 20080414
  2. AMIODARONE HCL [Concomitant]
  3. METRONIDAZOLE HCL [Concomitant]
  4. ASPIRIN [Concomitant]
  5. CEFEPIME [Concomitant]
  6. DIGOXIN [Concomitant]
  7. DOCUSATE [Concomitant]
  8. HALOPERIDOL [Concomitant]
  9. MGO [Concomitant]
  10. TAMSULOSIN HCL [Concomitant]
  11. MILRINONE LACTATE [Concomitant]

REACTIONS (3)
  - GASTROINTESTINAL HAEMORRHAGE [None]
  - HAEMOGLOBIN DECREASED [None]
  - INTERNATIONAL NORMALISED RATIO INCREASED [None]
